FAERS Safety Report 13397825 (Version 1)
Quarter: 2017Q2

REPORT INFORMATION
  Report Type: Report from Study
  Country: None (occurrence: BR)
  Receive Date: 20170403
  Receipt Date: 20170403
  Transmission Date: 20170830
  Serious: Yes (Other)
  Sender: FDA-Public Use
  Company Number: BR-ABBVIE-17P-020-1931084-00

PATIENT
  Sex: Female
  Weight: 84 kg

DRUGS (2)
  1. SYNTHROID [Suspect]
     Active Substance: LEVOTHYROXINE SODIUM
     Indication: THYROID CANCER
  2. SYNTHROID [Suspect]
     Active Substance: LEVOTHYROXINE SODIUM
     Indication: HYPOTHYROIDISM
     Dosage: DAILY DOSE: 137MCG MORNINGS, FASTING
     Route: 048
     Dates: start: 2005

REACTIONS (10)
  - Abasia [Not Recovered/Not Resolved]
  - Body height decreased [Not Recovered/Not Resolved]
  - Weight increased [Not Recovered/Not Resolved]
  - Nail disorder [Not Recovered/Not Resolved]
  - Meniscus removal [Not Recovered/Not Resolved]
  - Diabetes mellitus [Not Recovered/Not Resolved]
  - Alopecia [Not Recovered/Not Resolved]
  - Drug dose omission [Recovered/Resolved]
  - Cholelithiasis [Unknown]
  - Arthralgia [Unknown]

NARRATIVE: CASE EVENT DATE: 2005
